FAERS Safety Report 7457382-6 (Version None)
Quarter: 2011Q2

REPORT INFORMATION
  Report Type: 
  Country: None (occurrence: None)
  Receive Date: 20110502
  Receipt Date: 20110502
  Transmission Date: 20111010
  Serious: Yes (Other)
  Sender: FDA-Public Use
  Company Number: None

PATIENT
  Sex: Male
  Weight: 95.2554 kg

DRUGS (3)
  1. OMEPRAZOLE [Suspect]
  2. PRAVACHOL [Suspect]
  3. DULERA TABLET [Suspect]
     Indication: ASTHMA
     Dosage: 2P BID INHAL
     Route: 055
     Dates: start: 20110124, end: 20110210

REACTIONS (3)
  - MOOD ALTERED [None]
  - DEPRESSION [None]
  - IRRITABILITY [None]
